FAERS Safety Report 17209531 (Version 1)
Quarter: 2019Q4

REPORT INFORMATION
  Report Type: Spontaneous
  Country: US (occurrence: US)
  Receive Date: 20191227
  Receipt Date: 20191227
  Transmission Date: 20200122
  Serious: No
  Sender: FDA-Public Use
  Company Number: US-TORRENT-00009576

PATIENT
  Age: 79 Year
  Sex: Female

DRUGS (1)
  1. ZOLPIDEM [Suspect]
     Active Substance: ZOLPIDEM TARTRATE
     Indication: PRODUCT USED FOR UNKNOWN INDICATION
     Dosage: CONTROLLED RELEASE

REACTIONS (3)
  - Wheezing [Unknown]
  - Dyspnoea [Unknown]
  - Insomnia [Unknown]
